FAERS Safety Report 17235456 (Version 1)
Quarter: 2020Q1

REPORT INFORMATION
  Report Type: Report from Study
  Country: DE (occurrence: DE)
  Receive Date: 20200106
  Receipt Date: 20200106
  Transmission Date: 20200409
  Serious: Yes (Other)
  Sender: FDA-Public Use
  Company Number: DE-TEVA-2019-DE-1162119

PATIENT
  Age: 71 Year
  Sex: Female

DRUGS (13)
  1. PREDNISOLON GALEN [Concomitant]
     Active Substance: PREDNISOLONE
     Indication: PRODUCT USED FOR UNKNOWN INDICATION
     Dosage: 5 MG PER DAY
     Route: 065
  2. FOLSAURE ABZ [Concomitant]
     Indication: FOLATE DEFICIENCY
     Dosage: 5 MG PER 1 WEEK
     Route: 065
  3. OXALIPLATIN. [Suspect]
     Active Substance: OXALIPLATIN
     Indication: RECTAL CANCER
     Dosage: 127.1 MG
     Route: 042
     Dates: start: 20191008, end: 20191008
  4. CALCIUM DURA [Concomitant]
     Indication: CALCIUM DEFICIENCY
     Dosage: 1000 MG PER DAY
     Route: 065
  5. SIMVASTATIN. [Concomitant]
     Active Substance: SIMVASTATIN
     Indication: HYPERCHOLESTEROLAEMIA
     Dosage: 20 MG PER DAY
     Route: 065
  6. NOVAMINSULFON [Concomitant]
     Active Substance: METAMIZOLE
     Indication: POLYARTHRITIS
     Dosage: 160 DOSAGE FORMS PER DAY
     Route: 065
  7. EUTHYROX [Concomitant]
     Active Substance: LEVOTHYROXINE SODIUM
     Indication: THYROIDECTOMY
     Dosage: 0.1 MG PER DAY
     Route: 065
  8. PANTOZOL [Concomitant]
     Active Substance: PANTOPRAZOLE SODIUM
     Indication: ANTACID THERAPY
     Dosage: 40 MG PER DAY
     Route: 065
  9. MAGNESIUM JENAPHARM [Concomitant]
     Indication: MAGNESIUM DEFICIENCY
     Dosage: 100 MG PER DAY
     Route: 065
  10. MTX HEXAL [Concomitant]
     Active Substance: METHOTREXATE SODIUM
     Indication: POLYARTHRITIS
     Dosage: 15 MG PER 1 WEEK
     Route: 065
  11. OXALIPLATIN. [Suspect]
     Active Substance: OXALIPLATIN
     Dosage: 127.1 MG
     Route: 042
     Dates: start: 20190910, end: 20190910
  12. JODETTEN HENNING [Concomitant]
     Indication: THYROIDECTOMY
     Dosage: 0.1 MG PER 1 WEEK
     Route: 065
  13. OXALIPLATIN. [Suspect]
     Active Substance: OXALIPLATIN
     Dosage: 127.1 MG
     Route: 042
     Dates: start: 20190924, end: 20190924

REACTIONS (1)
  - Polyneuropathy [Recovered/Resolved]

NARRATIVE: CASE EVENT DATE: 20190916
